FAERS Safety Report 4376375-9 (Version None)
Quarter: 2004Q2

REPORT INFORMATION
  Report Type: 
  Country: None (occurrence: None)
  Receive Date: 20040610
  Receipt Date: 20040610
  Transmission Date: 20050107
  Serious: Yes (Other)
  Sender: FDA-Public Use
  Company Number: None

PATIENT
  Age: 16 Year
  Sex: Female
  Weight: 63.5036 kg

DRUGS (1)
  1. CORICIDIN, COUGH AND COLD TALBETS [Suspect]
     Dosage: 16 TABS ORAL [1 DOSE]
     Route: 048

REACTIONS (2)
  - DRUG ABUSER [None]
  - INTENTIONAL OVERDOSE [None]
